FAERS Safety Report 20104983 (Version 1)
Quarter: 2021Q4

REPORT INFORMATION
  Report Type: Spontaneous
  Country: CA (occurrence: CA)
  Receive Date: 20211124
  Receipt Date: 20211124
  Transmission Date: 20220303
  Serious: Yes (Other)
  Sender: FDA-Public Use
  Company Number: CA-SA-SAC20211118001697

PATIENT
  Age: 49 Year
  Sex: Female

DRUGS (18)
  1. HYDROXYCHLOROQUINE SULFATE [Suspect]
     Active Substance: HYDROXYCHLOROQUINE SULFATE
     Dosage: 400 MG, QD
  2. ACTEMRA [Suspect]
     Active Substance: TOCILIZUMAB
     Dosage: 162 MG, QW
     Route: 058
  3. AZATHIOPRINE [Suspect]
     Active Substance: AZATHIOPRINE
     Indication: Product used for unknown indication
  4. CYCLOSPORINE [Suspect]
     Active Substance: CYCLOSPORINE
     Indication: Rheumatoid arthritis
  5. CYCLOSPORINE [Suspect]
     Active Substance: CYCLOSPORINE
     Indication: Product used for unknown indication
  6. ENBREL [Suspect]
     Active Substance: ETANERCEPT
     Indication: Rheumatoid arthritis
  7. ESOMEPRAZOLE [Suspect]
     Active Substance: ESOMEPRAZOLE
     Indication: Product used for unknown indication
  8. MAGNESIUM [Suspect]
     Active Substance: MAGNESIUM
  9. FOLIC ACID [Suspect]
     Active Substance: FOLIC ACID
     Indication: Product used for unknown indication
  10. GOLD [Suspect]
     Active Substance: GOLD
     Indication: Product used for unknown indication
  11. LEFLUNOMIDE [Suspect]
     Active Substance: LEFLUNOMIDE
  12. METHOTREXATE [Suspect]
     Active Substance: METHOTREXATE
  13. SULFASALAZINE [Suspect]
     Active Substance: SULFASALAZINE
  14. THIAMINE HYDROCHLORIDE [Suspect]
     Active Substance: THIAMINE HYDROCHLORIDE
  15. XELJANZ [Suspect]
     Active Substance: TOFACITINIB CITRATE
  16. NICOTINAMIDE [Suspect]
     Active Substance: NIACINAMIDE
  17. SODIUM [Suspect]
     Active Substance: SODIUM
  18. GOLD SODIUM THIOMALATE [Suspect]
     Active Substance: GOLD SODIUM THIOMALATE

REACTIONS (9)
  - Breast cancer [Recovered/Resolved]
  - Condition aggravated [Recovered/Resolved]
  - Drug intolerance [Recovered/Resolved]
  - Hepatic cirrhosis [Recovered/Resolved]
  - Injection site reaction [Recovered/Resolved]
  - Neuropathy peripheral [Recovered/Resolved]
  - Nonalcoholic fatty liver disease [Recovered/Resolved]
  - Pruritus [Recovered/Resolved]
  - Treatment failure [Unknown]
